FAERS Safety Report 12446405 (Version 1)
Quarter: 2016Q2

REPORT INFORMATION
  Report Type: Spontaneous
  Country: US (occurrence: None)
  Receive Date: 20160607
  Receipt Date: 20160607
  Transmission Date: 20160815
  Serious: Yes (Other)
  Sender: FDA-Public Use
  Company Number: None

PATIENT
  Age: 52 Year
  Sex: Male
  Weight: 113.4 kg

DRUGS (1)
  1. FLUTICASONE PROPIONATE. [Suspect]
     Active Substance: FLUTICASONE PROPIONATE
     Indication: ALLERGIC RESPIRATORY SYMPTOM
     Dosage: 120 SPRAY(S) TWICE A DAY SPRAY IN EACH NOSTRIL
     Route: 045
     Dates: start: 20160601, end: 20160605

REACTIONS (1)
  - Palpitations [None]

NARRATIVE: CASE EVENT DATE: 20160601
